FAERS Safety Report 8932683 (Version 1)
Quarter: 2013Q1

REPORT INFORMATION
  Report Type: Spontaneous
  Country: US (occurrence: None)
  Receive Date: 20121126
  Receipt Date: 20121126
  Transmission Date: 20140127
  Serious: Yes (Hospitalization)
  Sender: FDA-Public Use
  Company Number: None

PATIENT
  Age: 62 Year
  Sex: Male
  Weight: 50.8 kg

DRUGS (3)
  1. LENALIDOMIDE [Suspect]
     Dosage: 25 MG ON DAYS 1-21 PO
     Route: 048
     Dates: start: 20121031, end: 20121120
  2. PANOBINOSTAT [Suspect]
     Dosage: 20MG DAYS 1, 3, 5, 15, 17, 19
     Dates: start: 20121031, end: 20121118
  3. DEXAMETHASONE [Concomitant]

REACTIONS (1)
  - Hypercalcaemia [None]
